FAERS Safety Report 6780794-0 (Version None)
Quarter: 2010Q2

REPORT INFORMATION
  Report Type: 
  Country: None (occurrence: None)
  Receive Date: 20100621
  Receipt Date: 20100325
  Transmission Date: 20101027
  Serious: Yes (Hospitalization, Other)
  Sender: FDA-Public Use
  Company Number: US-BAYER-200942553NA

PATIENT
  Age: 25 Year
  Sex: Female
  Weight: 84 kg

DRUGS (9)
  1. YAZ [Suspect]
     Indication: CONTRACEPTION
     Dates: start: 20000101, end: 20070101
  2. YASMIN [Suspect]
     Indication: CONTRACEPTION
     Route: 048
     Dates: start: 20080101, end: 20080101
  3. JOLIVETTE [Concomitant]
     Dates: end: 20080419
  4. ONDANSETRON [Concomitant]
  5. PERCOCET [Concomitant]
  6. DOCUSATE SODIUM [Concomitant]
  7. IBUPROFEN [Concomitant]
  8. MICRONOR [Concomitant]
  9. MOTRIN [Concomitant]

REACTIONS (4)
  - ABDOMINAL PAIN UPPER [None]
  - CHOLECYSTITIS CHRONIC [None]
  - NAUSEA [None]
  - VOMITING [None]
